FAERS Safety Report 16845817 (Version 1)
Quarter: 2019Q3

REPORT INFORMATION
  Report Type: Spontaneous
  Country: US (occurrence: US)
  Receive Date: 20190924
  Receipt Date: 20190924
  Transmission Date: 20191005
  Serious: No
  Sender: FDA-Public Use
  Company Number: US-CATALYST PHARMACEUTICALS, INC-2019CAT00332

PATIENT
  Sex: Female

DRUGS (13)
  1. CALCIUM 500 MG + VITAMIN D [Concomitant]
  2. MESTINON [Concomitant]
     Active Substance: PYRIDOSTIGMINE BROMIDE
     Dosage: 60 MG, 3X/DAY
  3. ONCE DAILY VITAMIN (50+ ADVANCED) [Concomitant]
  4. ZOFRAN [Concomitant]
     Active Substance: ONDANSETRON HYDROCHLORIDE
     Dosage: 4 MG, AS NEEDED
  5. IVIG (IMMUNOGLOBULIN) [Concomitant]
     Dosage: UNK
     Dates: end: 2019
  6. VITAMIN D 2000 UNITS [Concomitant]
     Dosage: 2000 IU, 1X/DAY
  7. FIRDAPSE [Suspect]
     Active Substance: AMIFAMPRIDINE
     Indication: MYASTHENIC SYNDROME
     Dosage: 10 MG, 4X/DAY
     Dates: start: 20190719, end: 2019
  8. CARBOPLATIN. [Concomitant]
     Active Substance: CARBOPLATIN
     Dosage: 3 DAYS OUT OF EVERY 4 WEEKS
  9. PROCHLORPERAZINE MALEATE. [Concomitant]
     Active Substance: PROCHLORPERAZINE MALEATE
     Dosage: 10 MG, AS NEEDED
  10. IVIG (IMMUNOGLOBULIN) [Concomitant]
     Dosage: UNK (DOSE INCREASE)
     Dates: start: 2019
  11. ENSURE [Concomitant]
     Active Substance: AMINO ACIDS\DEXTROSE\ELECTROLYTES NOS\SOYBEAN OIL\VITAMINS
     Dosage: UNK, 4X/DAY
  12. FIRDAPSE [Suspect]
     Active Substance: AMIFAMPRIDINE
     Dosage: 5 MG, 4X/DAY
     Dates: start: 2019
  13. ETOPOSIDE. [Concomitant]
     Active Substance: ETOPOSIDE
     Dosage: 3 DAYS OUT OF EVERY 4 WEEKS

REACTIONS (2)
  - Dysphagia [Unknown]
  - Dysphonia [Unknown]

NARRATIVE: CASE EVENT DATE: 2019
